FAERS Safety Report 9106202 (Version 1)
Quarter: 2013Q1

REPORT INFORMATION
  Report Type: Report from Study
  Country: CL (occurrence: CL)
  Receive Date: 20130220
  Receipt Date: 20130220
  Transmission Date: 20140127
  Serious: Yes (Death, Hospitalization)
  Sender: FDA-Public Use
  Company Number: CL-ROCHE-1192876

PATIENT
  Age: 79 Year
  Sex: Female
  Weight: 65 kg

DRUGS (3)
  1. XELODA [Suspect]
     Indication: COLON CANCER
     Route: 048
     Dates: start: 20130114, end: 20130127
  2. NITRENDIPINE [Concomitant]
     Indication: HYPERTENSION
     Route: 048
     Dates: start: 2008, end: 20130216
  3. LEVOTHYROXINE [Concomitant]
     Indication: HYPOTHYROIDISM
     Route: 048
     Dates: start: 1984, end: 20130216

REACTIONS (3)
  - Cerebral infarction [Fatal]
  - Sepsis [Fatal]
  - Haemorrhage [Fatal]
